FAERS Safety Report 23691588 (Version 1)
Quarter: 2024Q2

REPORT INFORMATION
  Report Type: Spontaneous
  Country: US (occurrence: US)
  Receive Date: 20240401
  Receipt Date: 20240401
  Transmission Date: 20240716
  Serious: Yes (Hospitalization)
  Sender: FDA-Public Use
  Company Number: US-VELOXIS PHARMACEUTICALS, INC.-2024-VEL-00163

PATIENT
  Sex: Female

DRUGS (2)
  1. ENVARSUS XR [Suspect]
     Active Substance: TACROLIMUS
     Indication: Renal transplant
     Dosage: 0.75 MILLIGRAM, QD
  2. ENVARSUS XR [Suspect]
     Active Substance: TACROLIMUS
     Dosage: 0.75 MILLIGRAM, EVERY OTHER DAY

REACTIONS (3)
  - Immunosuppressant drug level abnormal [Unknown]
  - Surgery [Unknown]
  - Constipation [Unknown]
